FAERS Safety Report 7321272-X (Version None)
Quarter: 2011Q1

REPORT INFORMATION
  Report Type: 
  Country: None (occurrence: None)
  Receive Date: 20110228
  Receipt Date: 20100430
  Transmission Date: 20110831
  Serious: Yes (Other)
  Sender: FDA-Public Use
  Company Number: US-PFIZER INC-2010042566

PATIENT
  Age: 24 Year
  Sex: Female

DRUGS (3)
  1. ATIVAN [Concomitant]
     Dosage: 1 MG, UNK
  2. GEODON [Suspect]
     Indication: BIPOLAR DISORDER
  3. GEODON [Suspect]
     Indication: AFFECTIVE DISORDER
     Dosage: 20 MG, 2X/DAY

REACTIONS (4)
  - DYSPNOEA [None]
  - FATIGUE [None]
  - SWOLLEN TONGUE [None]
  - DYSARTHRIA [None]
